FAERS Safety Report 12160328 (Version 2)
Quarter: 2016Q2

REPORT INFORMATION
  Report Type: Spontaneous
  Country: US (occurrence: US)
  Receive Date: 20160308
  Receipt Date: 20160411
  Transmission Date: 20160815
  Serious: Yes (Hospitalization)
  Sender: FDA-Public Use
  Company Number: US-INDIVIOR LIMITED-INDV-088627-2016

PATIENT
  Age: 30 Year
  Sex: Female

DRUGS (1)
  1. SUBOXONE [Suspect]
     Active Substance: BUPRENORPHINE HYDROCHLORIDE\NALOXONE HYDROCHLORIDE
     Indication: PRODUCT USED FOR UNKNOWN INDICATION
     Dosage: 20 MG, DAILY
     Route: 060
     Dates: start: 20131022

REACTIONS (4)
  - Feeling abnormal [Recovered/Resolved]
  - Mental disorder [Recovered/Resolved]
  - Product preparation error [Not Recovered/Not Resolved]
  - Formication [Recovered/Resolved]

NARRATIVE: CASE EVENT DATE: 20131022
